FAERS Safety Report 12758845 (Version 1)
Quarter: 2016Q3

REPORT INFORMATION
  Report Type: Spontaneous
  Country: US (occurrence: US)
  Receive Date: 20160916
  Receipt Date: 20160916
  Transmission Date: 20161109
  Serious: Yes (Other)
  Sender: FDA-Public Use
  Company Number: None

PATIENT
  Age: 55 Year
  Sex: Male

DRUGS (1)
  1. FLUOROURACIL 5-FU 1800 MG FRESNIUS [Suspect]
     Active Substance: FLUOROURACIL
     Indication: OESOPHAGEAL CARCINOMA
     Dosage: 3530MG CONTINUOUSLY OVER 46 HOURS IV
     Route: 042
     Dates: start: 20160720, end: 20160722

REACTIONS (2)
  - Infusion related reaction [None]
  - Heart rate increased [None]

NARRATIVE: CASE EVENT DATE: 20160720
